FAERS Safety Report 12448543 (Version 1)
Quarter: 2016Q2

REPORT INFORMATION
  Report Type: Spontaneous
  Country: BR (occurrence: BR)
  Receive Date: 20160608
  Receipt Date: 20160608
  Transmission Date: 20160815
  Serious: Yes (Other)
  Sender: FDA-Public Use
  Company Number: BR-IMPAX LABORATORIES, INC-2016-IPXL-00612

PATIENT
  Age: 62 Year
  Sex: Male

DRUGS (1)
  1. CHLOROQUINE PHOSPHATE. [Suspect]
     Active Substance: CHLOROQUINE PHOSPHATE
     Indication: PORPHYRIA NON-ACUTE
     Dosage: SINCE 1 YEAR, TWICE A WEEK
     Route: 065

REACTIONS (1)
  - Eosinophilic cellulitis [Recovering/Resolving]
